FAERS Safety Report 10198470 (Version 1)
Quarter: 2014Q2

REPORT INFORMATION
  Report Type: Spontaneous
  Country: US (occurrence: US)
  Receive Date: 20140527
  Receipt Date: 20140527
  Transmission Date: 20141212
  Serious: No
  Sender: FDA-Public Use
  Company Number: US-NOVEN-13US007290

PATIENT
  Age: 10 Year
  Sex: Male
  Weight: 31.75 kg

DRUGS (4)
  1. DAYTRANA [Suspect]
     Indication: ATTENTION DEFICIT/HYPERACTIVITY DISORDER
     Dosage: 30 MG, UNK
     Route: 062
  2. DEPAKOTE [Concomitant]
     Indication: AFFECTIVE DISORDER
     Dosage: 100 MG, UNK
  3. RISPERDAL [Concomitant]
     Indication: AUTISM SPECTRUM DISORDER
     Dosage: 0.75 MG, UNK
  4. RITALIN [Concomitant]
     Indication: ATTENTION DEFICIT/HYPERACTIVITY DISORDER
     Dosage: 20 MG, UNK

REACTIONS (3)
  - Incorrect drug administration duration [Unknown]
  - Product quality issue [Unknown]
  - No adverse event [None]
